FAERS Safety Report 7943460-1 (Version None)
Quarter: 2011Q4

REPORT INFORMATION
  Report Type: 
  Country: None (occurrence: None)
  Receive Date: 20111128
  Receipt Date: 20111125
  Transmission Date: 20120403
  Serious: Yes (Other)
  Sender: FDA-Public Use
  Company Number: FR-B.I. PHARMACEUTICALS,INC./RIDGEFIELD-2011-FF-00838FF

PATIENT
  Sex: Female
  Weight: 68 kg

DRUGS (8)
  1. TRAMADOL HCL [Concomitant]
     Indication: PAIN
     Dosage: 300 MG
     Route: 042
     Dates: start: 20110910
  2. ACETAMINOPHEN AND TRAMADOL HCL [Concomitant]
     Dosage: 150/1300
     Route: 048
     Dates: start: 20110910, end: 20110916
  3. ACUPAN [Concomitant]
     Indication: PAIN
  4. MORPHINE SULFATE [Concomitant]
     Dosage: 60 MG
     Route: 048
     Dates: start: 20110909, end: 20110911
  5. PRADAXA [Suspect]
     Indication: KNEE ARTHROPLASTY
  6. PRADAXA [Suspect]
     Indication: THROMBOSIS PROPHYLAXIS
     Dosage: 150 MG
     Route: 048
     Dates: start: 20110908, end: 20110909
  7. ACETAMINOPHEN [Concomitant]
     Indication: PAIN
     Dosage: 3 G
     Route: 042
     Dates: start: 20110910
  8. LEVOTHYROXINE SODIUM [Concomitant]

REACTIONS (1)
  - DEEP VEIN THROMBOSIS [None]
